FAERS Safety Report 7275682-X (Version None)
Quarter: 2011Q1

REPORT INFORMATION
  Report Type: 
  Country: None (occurrence: None)
  Receive Date: 20110131
  Receipt Date: 20110117
  Transmission Date: 20110831
  Serious: Yes (Hospitalization)
  Sender: FDA-Public Use
  Company Number: 024701

PATIENT
  Sex: Female
  Weight: 60 kg

DRUGS (2)
  1. KEPPRA [Suspect]
     Indication: BRAIN NEOPLASM
     Dosage: 250 MG BID, ORAL
     Route: 048
     Dates: start: 20101210, end: 20101221
  2. KEPPRA [Suspect]
     Indication: EPILEPSY
     Dosage: 250 MG BID, ORAL
     Route: 048
     Dates: start: 20101210, end: 20101221

REACTIONS (1)
  - THROMBOCYTOPENIA [None]
